FAERS Safety Report 18943188 (Version 2)
Quarter: 2021Q1

REPORT INFORMATION
  Report Type: Report from Study
  Country: None (occurrence: US)
  Receive Date: 20210226
  Receipt Date: 20210302
  Transmission Date: 20210420
  Serious: Yes (Other)
  Sender: FDA-Public Use
  Company Number: US-ABBVIE-21K-163-3787169-00

PATIENT
  Sex: Male
  Weight: 99.88 kg

DRUGS (2)
  1. ATENOLOL. [Concomitant]
     Active Substance: ATENOLOL
     Indication: BLOOD PRESSURE MEASUREMENT
  2. HUMIRA [Suspect]
     Active Substance: ADALIMUMAB
     Indication: RHEUMATOID ARTHRITIS
     Route: 058
     Dates: start: 2017

REACTIONS (5)
  - Insomnia [Unknown]
  - Fall [Recovered/Resolved]
  - Joint injury [Recovering/Resolving]
  - Arthralgia [Recovering/Resolving]
  - Skin laceration [Recovered/Resolved]

NARRATIVE: CASE EVENT DATE: 2020
